FAERS Safety Report 7616931-5 (Version None)
Quarter: 2011Q3

REPORT INFORMATION
  Report Type: 
  Country: None (occurrence: None)
  Receive Date: 20110718
  Receipt Date: 20110708
  Transmission Date: 20111222
  Serious: No
  Sender: FDA-Public Use
  Company Number: US-BIOGENIDEC-2011BI025467

PATIENT
  Age: 32 Year
  Sex: Female

DRUGS (4)
  1. TYSABRI [Suspect]
     Indication: MULTIPLE SCLEROSIS
     Route: 042
     Dates: start: 20110613
  2. TYSABRI [Suspect]
     Route: 042
     Dates: start: 20100301, end: 20101129
  3. TYSABRI [Suspect]
     Route: 042
     Dates: start: 20080723, end: 20081125
  4. AVONEX [Concomitant]
     Indication: MULTIPLE SCLEROSIS
     Route: 030
     Dates: start: 20040418

REACTIONS (2)
  - DEPRESSION [None]
  - PANIC ATTACK [None]
